FAERS Safety Report 7247944-3 (Version None)
Quarter: 2011Q1

REPORT INFORMATION
  Report Type: 
  Country: None (occurrence: None)
  Receive Date: 20110127
  Receipt Date: 20101013
  Transmission Date: 20110831
  Serious: No
  Sender: FDA-Public Use
  Company Number: US-BAYER-201022566BCC

PATIENT
  Sex: Male
  Weight: 86.364 kg

DRUGS (1)
  1. MIDOL EXTENDED RELIEF CAPLETS [Suspect]
     Indication: HEADACHE
     Dosage: 440 MG, UNK
     Route: 048
     Dates: start: 20101013

REACTIONS (4)
  - VOMITING [None]
  - NAUSEA [None]
  - DIARRHOEA [None]
  - DIZZINESS [None]
